FAERS Safety Report 5644134-2 (Version None)
Quarter: 2008Q1

REPORT INFORMATION
  Report Type: 
  Country: None (occurrence: None)
  Receive Date: 20080227
  Receipt Date: 20080218
  Transmission Date: 20080703
  Serious: Yes (Other)
  Sender: FDA-Public Use
  Company Number: CHPA2008US03103

PATIENT
  Age: 40 Year
  Sex: Female

DRUGS (2)
  1. NICOTINE [Suspect]
     Dosage: 21 MG
  2. NICOTINE [Suspect]
     Indication: SMOKING CESSATION THERAPY
     Dosage: 14 MG, QD, TRANSDERMAL
     Route: 062
     Dates: start: 20080215

REACTIONS (11)
  - ABNORMAL DREAMS [None]
  - BLISTER [None]
  - DRUG TOXICITY [None]
  - EYELID OEDEMA [None]
  - GLOSSODYNIA [None]
  - HALLUCINATION, AUDITORY [None]
  - INAPPROPRIATE SCHEDULE OF DRUG ADMINISTRATION [None]
  - INCORRECT DOSE ADMINISTERED [None]
  - LIP SWELLING [None]
  - OCULAR HYPERAEMIA [None]
  - PHARYNGEAL OEDEMA [None]
